FAERS Safety Report 4393840-9 (Version None)
Quarter: 2004Q3

REPORT INFORMATION
  Report Type: 
  Country: None (occurrence: None)
  Receive Date: 20040706
  Receipt Date: 20040629
  Transmission Date: 20050211
  Serious: Yes (Disabling, Congenital Anomaly)
  Sender: FDA-Public Use
  Company Number: RB-782-2004

PATIENT
  Age: 38 Year
  Sex: Female

DRUGS (4)
  1. BUPRENORPHINE HYDROCHLORIDE [Suspect]
     Indication: DRUG THERAPY CHANGED
     Dosage: 2 MG QD
     Route: 060
  2. EFAVIRENZ [Suspect]
     Indication: HIV INFECTION
     Dosage: 1 DF QD
     Route: 048
  3. COMBIVIR [Suspect]
     Indication: HIV INFECTION
     Dosage: 2 DF QD
     Route: 048
     Dates: start: 20010405, end: 20040102
  4. KALETRA [Suspect]
     Indication: HIV INFECTION
     Dosage: 6 DF QD
     Route: 048
     Dates: start: 20040129

REACTIONS (6)
  - CEREBRAL VENTRICLE DILATATION [None]
  - CONGENITAL ANOMALY [None]
  - DRUG EXPOSURE DURING PREGNANCY [None]
  - GASTROINTESTINAL DISORDER [None]
  - POLYHYDRAMNIOS [None]
  - ULTRASOUND SCAN ABNORMAL [None]
